FAERS Safety Report 6265165-8 (Version None)
Quarter: 2009Q3

REPORT INFORMATION
  Report Type: 
  Country: None (occurrence: None)
  Receive Date: 20090713
  Receipt Date: 20090706
  Transmission Date: 20100115
  Serious: Yes (Hospitalization, Other)
  Sender: FDA-Public Use
  Company Number: US-ASTRAZENECA-2009UW18689

PATIENT
  Age: 0 Year
  Sex: Male
  Weight: 10.4 kg

DRUGS (2)
  1. PULMICORT RESPULES [Suspect]
     Route: 055
  2. ALBUTEROL [Concomitant]

REACTIONS (4)
  - BRONCHITIS [None]
  - INCORRECT DOSE ADMINISTERED [None]
  - PYREXIA [None]
  - WHEEZING [None]
